FAERS Safety Report 16308190 (Version 1)
Quarter: 2019Q2

REPORT INFORMATION
  Report Type: Spontaneous
  Country: CZ (occurrence: CZ)
  Receive Date: 20190514
  Receipt Date: 20190514
  Transmission Date: 20190711
  Serious: Yes (Hospitalization, Disabling, Other)
  Sender: FDA-Public Use
  Company Number: CZ-B.I. PHARMACEUTICALS,INC./RIDGEFIELD-2019-12-001555

PATIENT
  Age: 81 Year
  Sex: Male
  Weight: 112 kg

DRUGS (3)
  1. CONCOR COR [Concomitant]
     Active Substance: BISOPROLOL FUMARATE
     Indication: HYPERTENSION
     Route: 048
     Dates: start: 201406
  2. TRAJENTA [Suspect]
     Active Substance: LINAGLIPTIN
     Indication: DIABETES MELLITUS
     Dosage: 1-0-0
     Route: 048
     Dates: start: 201706, end: 201812
  3. MICARDIS [Concomitant]
     Active Substance: TELMISARTAN
     Indication: HYPERTENSION
     Route: 048
     Dates: start: 201406

REACTIONS (4)
  - Balanoposthitis [Recovered/Resolved with Sequelae]
  - Acquired phimosis [Unknown]
  - Genitourinary tract infection [Recovering/Resolving]
  - Phimosis [Unknown]

NARRATIVE: CASE EVENT DATE: 201810
